FAERS Safety Report 7423819-1 (Version None)
Quarter: 2011Q2

REPORT INFORMATION
  Report Type: 
  Country: None (occurrence: None)
  Receive Date: 20110411
  Receipt Date: 20110325
  Transmission Date: 20111010
  Serious: Yes (Hospitalization)
  Sender: FDA-Public Use
  Company Number: 026915

PATIENT
  Age: 68 Year
  Sex: Male

DRUGS (3)
  1. LAMOTRIGINE [Suspect]
     Dosage: 400 MG
  2. LEVETIRACETAM [Suspect]
     Dosage: 200 MG, DOSE REDUCED
  3. PHENOBARBITAL (PHENOBARBITAL) [Suspect]
     Dosage: 100 MG

REACTIONS (2)
  - DISORIENTATION [None]
  - CONVULSION [None]
